FAERS Safety Report 7632494 (Version 4)
Quarter: 2013Q1

REPORT INFORMATION
  Report Type: Report from Study
  Country: IT (occurrence: IT)
  Receive Date: 20101018
  Receipt Date: 20130108
  Transmission Date: 20140127
  Serious: Yes (Life-Threatening)
  Sender: FDA-Public Use
  Company Number: PHHO2010IT15605

PATIENT
  Age: 58 Year
  Sex: Male
  Weight: 47 kg

DRUGS (7)
  1. AMN107 [Suspect]
     Indication: GASTROINTESTINAL STROMAL TUMOUR
     Dosage: 400 MG, UNK
     Route: 048
     Dates: start: 20100413, end: 20101009
  2. METFORMINA [Concomitant]
  3. ACETYLSALICYLATE LYSINE [Concomitant]
  4. CLOPIDOGREL [Concomitant]
  5. RAMIPRIL [Concomitant]
  6. BISOPROLOL HEMIFUMARATE [Concomitant]
  7. ATORVASTATIN [Concomitant]

REACTIONS (4)
  - Acute coronary syndrome [Recovered/Resolved]
  - Chest pain [Recovered/Resolved]
  - Angina unstable [Recovered/Resolved]
  - Coronary artery stenosis [Recovered/Resolved]
